FAERS Safety Report 8886312 (Version 1)
Quarter: 2012Q4

REPORT INFORMATION
  Report Type: 
  Country: BR (occurrence: BR)
  Receive Date: 20121105
  Receipt Date: 20121105
  Transmission Date: 20130627
  Serious: Yes (Other)
  Sender: FDA-Public Use
  Company Number: PHHY2011BR91705

PATIENT
  Age: 32 Year
  Sex: Female
  Weight: 62 kg

DRUGS (1)
  1. GENTEAL GEL [Suspect]
     Indication: EYE LUBRICATION THERAPY
     Dosage: 5 times daily
     Route: 047

REACTIONS (3)
  - Abortion spontaneous [Unknown]
  - Eye pain [Recovered/Resolved]
  - Exposure during pregnancy [Unknown]
